FAERS Safety Report 5818293-2 (Version None)
Quarter: 2008Q3

REPORT INFORMATION
  Report Type: 
  Country: None (occurrence: None)
  Receive Date: 20080717
  Receipt Date: 20080708
  Transmission Date: 20090109
  Serious: Yes (Other)
  Sender: FDA-Public Use
  Company Number: 2008JP003221

PATIENT
  Age: 57 Year
  Sex: Male

DRUGS (1)
  1. PROGRAF [Suspect]
     Indication: UNRELATED DONOR BONE MARROW TRANSPLANTATION THERAPY
     Dosage: 0.34 MG, CONTINUOUS, IV DRIP
     Route: 041
     Dates: start: 20080222

REACTIONS (1)
  - POST TRANSPLANT DISTAL LIMB SYNDROME [None]
